FAERS Safety Report 6404234-6 (Version None)
Quarter: 2009Q4

REPORT INFORMATION
  Report Type: 
  Country: None (occurrence: None)
  Receive Date: 20091016
  Receipt Date: 20090930
  Transmission Date: 20100525
  Serious: Yes (Other)
  Sender: FDA-Public Use
  Company Number: A0810591A

PATIENT
  Sex: Male
  Weight: 80 kg

DRUGS (1)
  1. NIQUITIN [Suspect]
     Indication: SMOKING CESSATION THERAPY
     Dosage: 21MG PER DAY
     Route: 062
     Dates: start: 20090916, end: 20090916

REACTIONS (5)
  - CONVULSION [None]
  - NAUSEA [None]
  - OVERDOSE [None]
  - SYNCOPE [None]
  - TACHYCARDIA [None]
